FAERS Safety Report 11074680 (Version 1)
Quarter: 2015Q2

REPORT INFORMATION
  Report Type: Spontaneous
  Country: US (occurrence: None)
  Receive Date: 20150428
  Receipt Date: 20150428
  Transmission Date: 20150821
  Serious: No
  Sender: FDA-Public Use
  Company Number: None

PATIENT
  Age: 63 Year
  Sex: Male
  Weight: 72.58 kg

DRUGS (5)
  1. NITRO-DUR [Suspect]
     Active Substance: NITROGLYCERIN
     Indication: OFF LABEL USE
     Dosage: APPLIED AS MEDICATED PATCH TO SKIN
  2. DEPO-TESTOSTERONE [Concomitant]
     Active Substance: TESTOSTERONE CYPIONATE
  3. MULTIVITAMIN [Concomitant]
     Active Substance: VITAMINS
  4. NATURE-THROID [Concomitant]
     Active Substance: THYROID, PORCINE
  5. LOPERAMIDE (IMODIUM) [Concomitant]

REACTIONS (1)
  - Asthenia [None]

NARRATIVE: CASE EVENT DATE: 20150420
